FAERS Safety Report 8643417 (Version 2)
Quarter: 2012Q4

REPORT INFORMATION
  Report Type: 
  Country: FR (occurrence: FR)
  Receive Date: 20120629
  Receipt Date: 20120904
  Transmission Date: 20130627
  Serious: Yes (Hospitalization)
  Sender: FDA-Public Use
  Company Number: PHHY2012FR055007

PATIENT
  Age: 73 Year
  Sex: Male

DRUGS (11)
  1. FORADIL [Suspect]
     Indication: ASTHMA
     Dosage: 12 ug, BID
     Dates: start: 20111125
  2. MIFLONIL [Suspect]
     Indication: ASTHMA
     Dosage: 400 ug, BID
     Dates: start: 20111125, end: 20120525
  3. FUROSEMIDE [Suspect]
     Dosage: 20 mg, UNK
     Route: 048
  4. INIPOMP [Suspect]
     Indication: OESOPHAGITIS
     Dosage: 40 mg, QD
     Route: 048
     Dates: start: 20110415, end: 20120525
  5. SINGULAIR [Suspect]
     Indication: ASTHMA
     Dosage: 10 mg, QD
     Route: 048
     Dates: start: 20110415, end: 20120525
  6. FLECAINE [Concomitant]
  7. KETODERM [Concomitant]
  8. TARDYFERON [Concomitant]
  9. TAREG [Concomitant]
  10. TRIDESONIT [Concomitant]
  11. VENTOLINE [Concomitant]

REACTIONS (13)
  - Pemphigoid [Not Recovered/Not Resolved]
  - Rash erythematous [Recovered/Resolved]
  - Rash maculo-papular [Recovered/Resolved]
  - Urticaria [Not Recovered/Not Resolved]
  - Rash generalised [Recovered/Resolved]
  - Dermatitis bullous [Recovered/Resolved]
  - Prurigo [Not Recovered/Not Resolved]
  - Biopsy skin abnormal [Not Recovered/Not Resolved]
  - Nausea [Unknown]
  - Vomiting [Unknown]
  - Eosinophil count increased [Unknown]
  - Blood immunoglobulin G decreased [Unknown]
  - Blood immunoglobulin M decreased [Unknown]
